FAERS Safety Report 5482071-7 (Version None)
Quarter: 2007Q4

REPORT INFORMATION
  Report Type: 
  Country: None (occurrence: None)
  Receive Date: 20071005
  Receipt Date: 20070926
  Transmission Date: 20080405
  Serious: Yes (Hospitalization)
  Sender: FDA-Public Use
  Company Number: CHNY2007FR03298

PATIENT
  Age: 46 Year
  Sex: Female

DRUGS (3)
  1. NICOTINE [Suspect]
     Indication: SMOKING CESSATION THERAPY
     Dosage: BUCCAL
     Route: 002
     Dates: start: 20070906, end: 20070923
  2. NICOPATCH (NICOTINE) [Concomitant]
  3. NICORETTE [Concomitant]

REACTIONS (3)
  - ANGIOEDEMA [None]
  - DRY MOUTH [None]
  - PHARYNGEAL OEDEMA [None]
